FAERS Safety Report 12393369 (Version 1)
Quarter: 2016Q2

REPORT INFORMATION
  Report Type: Spontaneous
  Country: GB (occurrence: GB)
  Receive Date: 20160523
  Receipt Date: 20160523
  Transmission Date: 20160815
  Serious: Yes (Other)
  Sender: FDA-Public Use
  Company Number: GB-ROCHE-1758925

PATIENT
  Age: 72 Year
  Sex: Female

DRUGS (12)
  1. KADCYLA [Suspect]
     Active Substance: ADO-TRASTUZUMAB EMTANSINE
     Indication: METASTASES TO LUNG
     Route: 065
     Dates: start: 2015
  2. CAPECITABINE. [Suspect]
     Active Substance: CAPECITABINE
     Indication: PRODUCT USED FOR UNKNOWN INDICATION
     Route: 065
     Dates: start: 2011
  3. HERCEPTIN [Suspect]
     Active Substance: TRASTUZUMAB
     Indication: METASTASES TO BONE
     Route: 065
     Dates: start: 2011
  4. TAXOTERE [Concomitant]
     Active Substance: DOCETAXEL
     Dosage: X 6
     Route: 065
  5. LAPATINIB [Concomitant]
     Active Substance: LAPATINIB
     Route: 065
     Dates: start: 2012
  6. VINORELBINE [Concomitant]
     Active Substance: VINORELBINE\VINORELBINE TARTRATE
     Route: 065
     Dates: start: 2014
  7. ERIBULIN [Concomitant]
     Active Substance: ERIBULIN
     Route: 065
     Dates: start: 2015
  8. CAPECITABINE. [Suspect]
     Active Substance: CAPECITABINE
     Route: 065
     Dates: start: 2012, end: 201206
  9. EXEMESTANE. [Concomitant]
     Active Substance: EXEMESTANE
     Dosage: TILL DISEASE PROGRESSION
     Route: 065
  10. LAPATINIB [Concomitant]
     Active Substance: LAPATINIB
     Route: 065
     Dates: start: 2014
  11. HERCEPTIN [Suspect]
     Active Substance: TRASTUZUMAB
     Indication: METASTASES TO LUNG
     Dosage: X 6
     Route: 065
     Dates: start: 2007
  12. TAMOXIFEN [Concomitant]
     Active Substance: TAMOXIFEN
     Route: 065
     Dates: start: 2012

REACTIONS (1)
  - Gastrointestinal toxicity [Unknown]
